FAERS Safety Report 15668756 (Version 3)
Quarter: 2019Q1

REPORT INFORMATION
  Report Type: Spontaneous
  Country: US (occurrence: US)
  Receive Date: 20181129
  Receipt Date: 20190104
  Transmission Date: 20190417
  Serious: No
  Sender: FDA-Public Use
  Company Number: US-UNITED THERAPEUTICS-UNT-2018-018079

PATIENT
  Age: 55 Year
  Sex: Female

DRUGS (5)
  1. ADEMPAS [Suspect]
     Active Substance: RIOCIGUAT
     Indication: PRODUCT USED FOR UNKNOWN INDICATION
     Dosage: 1.5 MG, TID
     Route: 048
  2. REMODULIN [Suspect]
     Active Substance: TREPROSTINIL
     Dosage: 0.031 ?G/KG, CONTINUING
     Route: 058
  3. REMODULIN [Suspect]
     Active Substance: TREPROSTINIL
     Dosage: 0.0385 ?G/KG, CONTINUING
     Route: 058
  4. REMODULIN [Suspect]
     Active Substance: TREPROSTINIL
     Indication: PULMONARY ARTERIAL HYPERTENSION
     Dosage: 0.0255 ?G/KG, CONTINUING
     Route: 058
     Dates: start: 20180630
  5. REMODULIN [Suspect]
     Active Substance: TREPROSTINIL
     Dosage: 0.0415 ?G/KG, CONTINUING
     Route: 058

REACTIONS (15)
  - Dizziness [Unknown]
  - Infusion site pain [Not Recovered/Not Resolved]
  - Sinus congestion [Unknown]
  - Oedema peripheral [Unknown]
  - Fatigue [Unknown]
  - Myalgia [Unknown]
  - Chest discomfort [Unknown]
  - Hypotension [Unknown]
  - Infusion site swelling [Unknown]
  - Dyspnoea exertional [Unknown]
  - Chest pain [Unknown]
  - Weight increased [Unknown]
  - Muscular weakness [Unknown]
  - Dyspnoea [Unknown]
  - Hyperhidrosis [Unknown]

NARRATIVE: CASE EVENT DATE: 2018
